FAERS Safety Report 7991197-5 (Version None)
Quarter: 2011Q4

REPORT INFORMATION
  Report Type: 
  Country: None (occurrence: None)
  Receive Date: 20111219
  Receipt Date: 20111209
  Transmission Date: 20120403
  Serious: Yes (Hospitalization)
  Sender: FDA-Public Use
  Company Number: US-GLAXOSMITHKLINE-A0875907A

PATIENT
  Age: 65 Year
  Sex: Female
  Weight: 89.1 kg

DRUGS (1)
  1. AVANDIA [Suspect]
     Indication: TYPE 2 DIABETES MELLITUS
     Route: 048

REACTIONS (2)
  - HYPERLIPIDAEMIA [None]
  - CEREBROVASCULAR ACCIDENT [None]
